FAERS Safety Report 4320488-4 (Version None)
Quarter: 2004Q1

REPORT INFORMATION
  Report Type: 
  Country: None (occurrence: None)
  Receive Date: 20040322
  Receipt Date: 20040311
  Transmission Date: 20041129
  Serious: Yes (Hospitalization)
  Sender: FDA-Public Use
  Company Number: PHNU2004DE01213

PATIENT
  Age: 51 Year
  Sex: Male

DRUGS (2)
  1. CLOZARIL [Suspect]
     Indication: SCHIZOPHRENIA
     Dosage: UP TO 300 MG/DAY
     Route: 048
     Dates: start: 20040123, end: 20040201
  2. CLOZARIL [Suspect]
     Dosage: UP TO 900 MG/DAY
     Route: 048
     Dates: start: 20040201

REACTIONS (16)
  - ABDOMINAL DISTENSION [None]
  - C-REACTIVE PROTEIN INCREASED [None]
  - CONCOMITANT DISEASE AGGRAVATED [None]
  - CONSTIPATION [None]
  - GASTRIC DISORDER [None]
  - GASTRIC ULCER [None]
  - ILEUS [None]
  - IMPAIRED GASTRIC EMPTYING [None]
  - LEUKOCYTOSIS [None]
  - NAUSEA [None]
  - OESOPHAGOGASTROSCOPY [None]
  - PYREXIA [None]
  - REFLUX OESOPHAGITIS [None]
  - SMALL INTESTINAL STENOSIS [None]
  - VOMITING [None]
  - X-RAY GASTROINTESTINAL TRACT ABNORMAL [None]
